FAERS Safety Report 4678875-0 (Version None)
Quarter: 2005Q2

REPORT INFORMATION
  Report Type: 
  Country: None (occurrence: None)
  Receive Date: 20050531
  Receipt Date: 20050519
  Transmission Date: 20051028
  Serious: Yes (Other)
  Sender: FDA-Public Use
  Company Number: 2005051150

PATIENT
  Age: 54 Year
  Sex: Female
  Weight: 140 kg

DRUGS (14)
  1. ACCUPRIL [Suspect]
     Indication: CARDIOMYOPATHY
     Dosage: 40 MG(20 MG, 2 IN 1 D D), ORAL
     Route: 048
     Dates: start: 20000801, end: 20050315
  2. COREG [Concomitant]
  3. BELLERGAL (BELLADONNA ALKALOIDS, ERGOTAMINE TARTRATE, PHENOBARBITAL) [Concomitant]
  4. SULFASALAZINE [Concomitant]
  5. PREDNISONE (PREDNISONE) [Concomitant]
  6. SUDAL (GUAIFENESIN, PSEUDOEPHEDRINE HYDROCHLORIDE) [Concomitant]
  7. ZANTAC [Concomitant]
  8. LASIX [Concomitant]
  9. POTASSIUM CHLORIDE [Concomitant]
  10. FELDENE [Concomitant]
  11. SINGULAIR [Concomitant]
  12. MECLIZINE [Concomitant]
  13. SALAGEN [Concomitant]
  14. TRAZODONE HCL [Concomitant]

REACTIONS (6)
  - ASTHENIA [None]
  - BREAST CANCER FEMALE [None]
  - CARDIAC FAILURE CONGESTIVE [None]
  - COUGH [None]
  - DIZZINESS [None]
  - SINUSITIS [None]
